FAERS Safety Report 14419647 (Version 3)
Quarter: 2018Q3

REPORT INFORMATION
  Report Type: Not Available
  Country: US (occurrence: US)
  Receive Date: 20180122
  Receipt Date: 20180712
  Transmission Date: 20181010
  Serious: No
  Sender: FDA-Public Use
  Company Number: US-NEUROCRINE BIOSCIENCES INC.-2017NBI01777

PATIENT
  Age: 34 Year
  Sex: Female

DRUGS (6)
  1. INGREZZA [Suspect]
     Active Substance: VALBENAZINE
     Indication: BLEPHAROSPASM
     Route: 048
     Dates: start: 201710, end: 201712
  2. KLONOPIN [Concomitant]
     Active Substance: CLONAZEPAM
     Indication: MUSCLE TWITCHING
     Dosage: PRN
     Route: 048
  3. BOTOX [Concomitant]
     Active Substance: ONABOTULINUMTOXINA
     Indication: MUSCLE TWITCHING
  4. ZYPREXA [Concomitant]
     Active Substance: OLANZAPINE
     Dosage: AT NIGHT
  5. INGREZZA [Suspect]
     Active Substance: VALBENAZINE
     Indication: TARDIVE DYSKINESIA
     Route: 048
     Dates: start: 201710, end: 201710
  6. INGREZZA [Suspect]
     Active Substance: VALBENAZINE
     Route: 048
     Dates: start: 20171204, end: 20180101

REACTIONS (3)
  - Dyskinesia [Recovered/Resolved]
  - Tremor [Recovered/Resolved]
  - Blepharospasm [Recovering/Resolving]

NARRATIVE: CASE EVENT DATE: 20171128
